FAERS Safety Report 11570348 (Version 5)
Quarter: 2016Q2

REPORT INFORMATION
  Report Type: Spontaneous
  Country: US (occurrence: US)
  Receive Date: 20150929
  Receipt Date: 20160623
  Transmission Date: 20160815
  Serious: Yes (Death, Hospitalization, Other)
  Sender: FDA-Public Use
  Company Number: US-CELGENEUS-USA-2015096172

PATIENT
  Age: 17 Year
  Sex: Male

DRUGS (9)
  1. CYCLOPHOSPHAMIDE. [Suspect]
     Active Substance: CYCLOPHOSPHAMIDE
     Indication: PRODUCT USED FOR UNKNOWN INDICATION
     Route: 048
  2. ETOPOSIDE. [Suspect]
     Active Substance: ETOPOSIDE
     Indication: PRODUCT USED FOR UNKNOWN INDICATION
     Route: 048
  3. AVASTIN [Suspect]
     Active Substance: BEVACIZUMAB
     Indication: PRODUCT USED FOR UNKNOWN INDICATION
     Route: 065
  4. FENOFIBRATE. [Suspect]
     Active Substance: FENOFIBRATE
     Indication: PRODUCT USED FOR UNKNOWN INDICATION
     Route: 065
  5. CELECOX [Suspect]
     Active Substance: CELECOXIB
     Indication: PRODUCT USED FOR UNKNOWN INDICATION
     Route: 065
  6. FILGRASTIM [Concomitant]
     Active Substance: FILGRASTIM
     Indication: COLONY STIMULATING FACTOR THERAPY
     Route: 065
     Dates: start: 20150131
  7. THALOMID [Suspect]
     Active Substance: THALIDOMIDE
     Indication: BRAIN NEOPLASM MALIGNANT
     Dosage: 250 MILLIGRAM
     Route: 048
     Dates: start: 20141210, end: 20150123
  8. THALOMID [Suspect]
     Active Substance: THALIDOMIDE
     Indication: ATYPICAL TERATOID/RHABDOID TUMOUR OF CNS
  9. MORPHINE [Concomitant]
     Active Substance: MORPHINE
     Indication: DYSPNOEA
     Route: 065
     Dates: start: 201501, end: 201501

REACTIONS (6)
  - Pneumonia influenzal [Fatal]
  - Multiple organ dysfunction syndrome [Fatal]
  - Atypical teratoid/rhabdoid tumour of CNS [Fatal]
  - Escherichia sepsis [Fatal]
  - Cardiopulmonary failure [Fatal]
  - Bone marrow failure [Unknown]

NARRATIVE: CASE EVENT DATE: 20150123
